FAERS Safety Report 6252042-1 (Version None)
Quarter: 2009Q2

REPORT INFORMATION
  Report Type: 
  Country: None (occurrence: None)
  Receive Date: 20090630
  Receipt Date: 20070411
  Transmission Date: 20091009
  Serious: Yes (Hospitalization)
  Sender: FDA-Public Use
  Company Number: US-ROCHE-638655

PATIENT
  Sex: Male

DRUGS (5)
  1. ENFUVIRTIDE [Suspect]
     Route: 065
     Dates: start: 20040712, end: 20080620
  2. VIREAD [Concomitant]
     Dosage: FREQUENCY: QD
     Dates: start: 20011205, end: 20080814
  3. KALETRA [Concomitant]
     Dates: start: 20021112, end: 20080814
  4. PREZISTA [Concomitant]
     Dates: start: 20060906, end: 20080814
  5. DOXYCYCLINE [Concomitant]
     Dates: start: 20050715, end: 20050725

REACTIONS (1)
  - BRONCHITIS [None]
